FAERS Safety Report 25881002 (Version 1)
Quarter: 2025Q4

REPORT INFORMATION
  Report Type: Spontaneous
  Country: US (occurrence: US)
  Receive Date: 20251004
  Receipt Date: 20251004
  Transmission Date: 20260118
  Serious: No
  Sender: SANOFI AVENTIS
  Company Number: US-SA-2025SA294898

PATIENT
  Age: 55 Year
  Sex: Female
  Weight: 60 kg

DRUGS (7)
  1. KEVZARA [Suspect]
     Active Substance: SARILUMAB
     Indication: Rheumatoid arthritis
     Dosage: 200 MG, QOW
     Route: 058
     Dates: start: 20250928
  2. POTASSIUM CHLORIDE [Concomitant]
     Active Substance: POTASSIUM CHLORIDE
  3. LASIX [Concomitant]
     Active Substance: FUROSEMIDE
  4. TRIAMTERENE [Concomitant]
     Active Substance: TRIAMTERENE
  5. PREDNISONE [Concomitant]
     Active Substance: PREDNISONE
  6. OXYCODONE HYDROCHLORIDE [Concomitant]
     Active Substance: OXYCODONE HYDROCHLORIDE
  7. NAPROXEN SODIUM [Concomitant]
     Active Substance: NAPROXEN SODIUM

REACTIONS (5)
  - Pain [Not Recovered/Not Resolved]
  - Sleep disorder due to a general medical condition [Recovering/Resolving]
  - Mobility decreased [Recovering/Resolving]
  - Injection site pain [Recovering/Resolving]
  - Injection site swelling [Recovered/Resolved]

NARRATIVE: CASE EVENT DATE: 20250928
